FAERS Safety Report 8229366-1 (Version None)
Quarter: 2012Q1

REPORT INFORMATION
  Report Type: 
  Country: None (occurrence: None)
  Receive Date: 20120322
  Receipt Date: 20120316
  Transmission Date: 20120608
  Serious: No
  Sender: FDA-Public Use
  Company Number: US-PFIZER INC-2012064849

PATIENT
  Sex: Female
  Weight: 78.005 kg

DRUGS (11)
  1. CRESTOR [Concomitant]
     Dosage: 10 MG, UNK
  2. MULTI-VITAMINS [Concomitant]
     Dosage: UNK
  3. CHANTIX [Suspect]
     Dosage: UNK
  4. VITAMIN D [Concomitant]
     Dosage: UNK
  5. LETROZOLE [Concomitant]
     Indication: LYMPHOMA
     Dosage: 2.5 MG, UNK
  6. CHANTIX [Suspect]
     Dosage: 0.5 MG, DAILY
  7. CHANTIX [Suspect]
     Dosage: 0.5 MG, DAILY
     Dates: start: 20120306
  8. CHANTIX [Suspect]
     Indication: SMOKING CESSATION THERAPY
     Dosage: UNK
  9. LETROZOLE [Concomitant]
     Indication: CERVIX CARCINOMA
  10. LETROZOLE [Concomitant]
     Indication: BREAST CANCER FEMALE
  11. METFORMIN HYDROCHLORIDE [Concomitant]
     Indication: DIABETES MELLITUS
     Dosage: 500 MG, UNK

REACTIONS (4)
  - DIZZINESS [None]
  - ANXIETY [None]
  - AGITATION [None]
  - IRRITABILITY [None]
